FAERS Safety Report 15010067 (Version 1)
Quarter: 2018Q2

REPORT INFORMATION
  Report Type: Spontaneous
  Country: US (occurrence: US)
  Receive Date: 20180614
  Receipt Date: 20180614
  Transmission Date: 20180711
  Serious: No
  Sender: FDA-Public Use
  Company Number: US-PFIZER INC-2018207391

PATIENT
  Age: 65 Year
  Sex: Female

DRUGS (3)
  1. NYSTATIN. [Concomitant]
     Active Substance: NYSTATIN
     Indication: ORAL CANDIDIASIS
     Dosage: UNK
  2. METHOTREXATE SODIUM. [Suspect]
     Active Substance: METHOTREXATE SODIUM
     Indication: ORAL CANDIDIASIS
     Dosage: UNK
  3. XELJANZ XR [Suspect]
     Active Substance: TOFACITINIB CITRATE
     Indication: ORAL CANDIDIASIS
     Dosage: 11 MG, (TB 24)

REACTIONS (2)
  - Product use in unapproved indication [Unknown]
  - Pain [Unknown]
